FAERS Safety Report 23314871 (Version 1)
Quarter: 2023Q4

REPORT INFORMATION
  Report Type: Spontaneous
  Country: CN (occurrence: CN)
  Receive Date: 20231219
  Receipt Date: 20231219
  Transmission Date: 20240110
  Serious: Yes (Hospitalization)
  Sender: FDA-Public Use
  Company Number: CN-MYLANLABS-2023M1135524

PATIENT
  Age: 58 Year
  Sex: Female

DRUGS (7)
  1. METFORMIN [Suspect]
     Active Substance: METFORMIN HYDROCHLORIDE
     Indication: Type 2 diabetes mellitus
     Dosage: 1000 MILLIGRAM, TID, RECEIVED 3 TIMES DAILY
     Route: 065
  2. INSULIN ASPART [Concomitant]
     Active Substance: INSULIN ASPART
     Indication: Type 2 diabetes mellitus
     Dosage: 10 INTERNATIONAL UNIT, TID, RECEIVED 3 TIMES DAILY BEFORE  MEALS
     Route: 058
  3. AMLODIPINE BESYLATE [Concomitant]
     Active Substance: AMLODIPINE BESYLATE
     Indication: Hypertension
     Dosage: 7.5 MILLIGRAM, QD
     Route: 065
  4. HYDROCHLOROTHIAZIDE\IRBESARTAN [Concomitant]
     Active Substance: HYDROCHLOROTHIAZIDE\IRBESARTAN
     Indication: Hypertension
     Dosage: UNK UNK, QD
     Route: 065
  5. TORSEMIDE [Concomitant]
     Active Substance: TORSEMIDE
     Indication: Cardiac failure chronic
     Dosage: 20 MILLIGRAM, BID
     Route: 065
  6. SPIRONOLACTONE [Concomitant]
     Active Substance: SPIRONOLACTONE
     Indication: Cardiac failure chronic
     Dosage: 20 MILLIGRAM, QD
     Route: 065
  7. METOPROLOL SUCCINATE [Concomitant]
     Active Substance: METOPROLOL SUCCINATE
     Indication: Cardiac failure chronic
     Dosage: 47.5 MILLIGRAM, QD
     Route: 065

REACTIONS (4)
  - Lactic acidosis [Recovered/Resolved]
  - Blindness [Recovered/Resolved]
  - Abdominal discomfort [Recovered/Resolved]
  - Visual impairment [Recovered/Resolved]
